FAERS Safety Report 16684951 (Version 2)
Quarter: 2019Q3

REPORT INFORMATION
  Report Type: Spontaneous
  Country: FR (occurrence: FR)
  Receive Date: 20190808
  Receipt Date: 20190826
  Transmission Date: 20191004
  Serious: Yes (Other)
  Sender: FDA-Public Use
  Company Number: FR-MYLANLABS-2019M1073579

PATIENT
  Age: 32 Year
  Sex: Female
  Weight: 158 kg

DRUGS (3)
  1. LAMOTRIGINE MYLAN 25 MG DISPERSIBLE TABLETS [Suspect]
     Active Substance: LAMOTRIGINE
     Indication: CYCLOTHYMIC DISORDER
  2. LOPERAMIDE [Concomitant]
     Active Substance: LOPERAMIDE
     Dosage: THREE TABLETS
     Dates: start: 20190801
  3. LAMOTRIGINE MYLAN 25 MG DISPERSIBLE TABLETS [Suspect]
     Active Substance: LAMOTRIGINE
     Indication: DEPRESSION
     Dosage: 50 MILLIGRAM, QD
     Route: 048
     Dates: start: 20190616, end: 2019

REACTIONS (14)
  - Feeling abnormal [Recovered/Resolved]
  - Feeling drunk [Recovered/Resolved]
  - Euphoric mood [Recovered/Resolved]
  - Tachycardia [Recovered/Resolved]
  - Disturbance in attention [Recovered/Resolved]
  - Decreased appetite [Recovered/Resolved]
  - Thirst [Recovered/Resolved]
  - Suicidal ideation [Recovered/Resolved]
  - Gait inability [Recovered/Resolved]
  - Abdominal pain [Recovered/Resolved]
  - Dizziness [Recovered/Resolved]
  - Product substitution issue [Unknown]
  - Dysphonia [Recovered/Resolved]
  - Nausea [Recovered/Resolved]

NARRATIVE: CASE EVENT DATE: 201907
